FAERS Safety Report 8083942-8 (Version None)
Quarter: 2012Q1

REPORT INFORMATION
  Report Type: 
  Country: None (occurrence: None)
  Receive Date: 20120128
  Receipt Date: 20110114
  Transmission Date: 20120608
  Serious: No
  Sender: FDA-Public Use
  Company Number: US-ABBOTT-11P-163-0697403-00

PATIENT
  Sex: Female
  Weight: 95.34 kg

DRUGS (1)
  1. HUMIRA [Suspect]
     Indication: PSORIATIC ARTHROPATHY
     Dates: start: 20080101

REACTIONS (4)
  - INJECTION SITE EXFOLIATION [None]
  - INJECTION SITE OEDEMA [None]
  - INJECTION SITE NECROSIS [None]
  - INJECTION SITE DISCOLOURATION [None]
